FAERS Safety Report 5532193-7 (Version None)
Quarter: 2007Q4

REPORT INFORMATION
  Report Type: 
  Country: None (occurrence: None)
  Receive Date: 20071203
  Receipt Date: 20071127
  Transmission Date: 20080405
  Serious: Yes (Death, Life-Threatening)
  Sender: FDA-Public Use
  Company Number: JP-AVENTIS-200712921JP

PATIENT
  Age: 76 Year
  Sex: Female

DRUGS (13)
  1. TAXOTERE [Suspect]
     Route: 041
     Dates: start: 20070821, end: 20070821
  2. TAXOTERE [Suspect]
     Route: 041
     Dates: start: 20070911, end: 20070911
  3. TAXOTERE [Suspect]
     Route: 041
     Dates: start: 20070821, end: 20070821
  4. TAXOTERE [Suspect]
     Route: 041
     Dates: start: 20070911, end: 20070911
  5. TAXOTERE [Suspect]
     Indication: METASTASES TO LIVER
     Route: 041
     Dates: start: 20070821, end: 20070821
  6. TAXOTERE [Suspect]
     Route: 041
     Dates: start: 20070911, end: 20070911
  7. PARAPLATIN [Suspect]
     Route: 041
     Dates: start: 20070821, end: 20070821
  8. PARAPLATIN [Suspect]
     Route: 041
     Dates: start: 20070911, end: 20070911
  9. PARAPLATIN [Suspect]
     Route: 041
     Dates: start: 20070821, end: 20070821
  10. PARAPLATIN [Suspect]
     Route: 041
     Dates: start: 20070911, end: 20070911
  11. PARAPLATIN [Suspect]
     Indication: METASTASES TO LIVER
     Route: 041
     Dates: start: 20070821, end: 20070821
  12. PARAPLATIN [Suspect]
     Route: 041
     Dates: start: 20070911, end: 20070911
  13. NO FURTHER INFORMATION OF COMCOMITANT MEDICATION [Concomitant]

REACTIONS (16)
  - ALANINE AMINOTRANSFERASE INCREASED [None]
  - ASPARTATE AMINOTRANSFERASE INCREASED [None]
  - BLOOD ALBUMIN DECREASED [None]
  - BLOOD ALKALINE PHOSPHATASE INCREASED [None]
  - BLOOD LACTATE DEHYDROGENASE INCREASED [None]
  - BRAIN NATRIURETIC PEPTIDE INCREASED [None]
  - C-REACTIVE PROTEIN INCREASED [None]
  - CARDIAC FAILURE CONGESTIVE [None]
  - CEREBRAL INFARCTION [None]
  - DISSEMINATED INTRAVASCULAR COAGULATION [None]
  - HAEMOGLOBIN DECREASED [None]
  - MYOCARDIAL INFARCTION [None]
  - PCO2 INCREASED [None]
  - RESPIRATORY FAILURE [None]
  - WHITE BLOOD CELL COUNT DECREASED [None]
  - WHITE BLOOD CELL COUNT INCREASED [None]
